FAERS Safety Report 22235758 (Version 2)
Quarter: 2023Q2

REPORT INFORMATION
  Report Type: Spontaneous
  Country: ID (occurrence: ID)
  Receive Date: 20230420
  Receipt Date: 20230505
  Transmission Date: 20230722
  Serious: Yes (Other)
  Sender: FDA-Public Use
  Company Number: ID-TEVA-2023-ID-2877823

PATIENT
  Age: 31 Year
  Sex: Female
  Weight: 50 kg

DRUGS (25)
  1. CALCIUM [Suspect]
     Active Substance: CALCIUM
     Indication: Product used for unknown indication
     Dosage: 6000 MILLIGRAM DAILY; 500 MG TWICE A DAY
     Route: 048
  2. CALCIUM [Suspect]
     Active Substance: CALCIUM
     Dosage: 500 MILLIGRAM DAILY; AT THE TIME OF DISCHARGE , ONCE A DAY
     Route: 048
  3. ACETAMINOPHEN [Suspect]
     Active Substance: ACETAMINOPHEN
     Indication: Staphylococcal infection
     Dosage: 1500 MILLIGRAM DAILY; DOSAGE: 500 MG THRICE DAILY
     Route: 048
  4. METHYLDOPA [Suspect]
     Active Substance: METHYLDOPA
     Indication: Hypertension
     Dosage: 500 MILLIGRAM DAILY; 250 MG TWICE A DAY
     Route: 048
  5. METHYLDOPA [Suspect]
     Active Substance: METHYLDOPA
     Dosage: 750 MILLIGRAM DAILY; DOSAGE: 250 MG THRICE DAILY (AT THE TIME OF DISCHARGE)
     Route: 048
  6. INSULIN ASPART [Suspect]
     Active Substance: INSULIN ASPART
     Indication: Type 1 diabetes mellitus
     Dosage: 18 IU (INTERNATIONAL UNIT) DAILY; DOSAGE: 6 IU THRICE DAILY, 15MIN BEFORE EATING
     Route: 058
  7. INSULIN ASPART [Suspect]
     Active Substance: INSULIN ASPART
     Dosage: 30 IU (INTERNATIONAL UNIT) DAILY; DOSAGE: 10 IU 3 TIMES A DAY 15 MINUTES BEFORE MEALS (AT THE TIME O
     Route: 065
  8. INSULIN NOS [Suspect]
     Active Substance: INSULIN NOS
     Indication: Type 1 diabetes mellitus
     Dosage: 10 IU (INTERNATIONAL UNIT) DAILY; DOSAGE: 10IU IN THE MORNING
     Route: 058
  9. INSULIN NOS [Suspect]
     Active Substance: INSULIN NOS
     Dosage: 18 IU (INTERNATIONAL UNIT) DAILY; DOSAGE: 18IU AT NIGHT
     Route: 058
  10. SODIUM CHLORIDE [Suspect]
     Active Substance: SODIUM CHLORIDE
     Indication: Fluid replacement
     Dosage: DOSAGE: 2L WITHIN 2 HOURS FOLLOWED BY 80DPM PER 4 HOURS AND 30DPM PER 18 HOURS
     Route: 042
  11. INSULIN NOS [Suspect]
     Active Substance: INSULIN NOS
     Indication: Type 1 diabetes mellitus
     Dosage: 1.5IU PER HOUR
     Route: 042
  12. INSULIN NOS [Suspect]
     Active Substance: INSULIN NOS
     Dosage: 1 IU PER HOUR , ON SECOND DAY OF ADMISSION
     Route: 042
  13. CEFTRIAXONE [Suspect]
     Active Substance: CEFTRIAXONE
     Indication: Staphylococcal infection
     Dosage: 2 GRAM DAILY; 1 G TWICE A DAY
     Route: 042
  14. FOSFOMYCIN [Suspect]
     Active Substance: FOSFOMYCIN
     Indication: Staphylococcal infection
     Dosage: 3000 MILLIGRAM DAILY; ONCE A DAY
     Route: 042
  15. METOCLOPRAMIDE [Suspect]
     Active Substance: METOCLOPRAMIDE
     Indication: Hyperemesis gravidarum
     Dosage: 30 MILLIGRAM DAILY; DOSAGE: 10 MG THRICE DAILY
     Route: 042
  16. VITAMIN B6 [Suspect]
     Active Substance: PYRIDOXINE HYDROCHLORIDE
     Indication: Product used for unknown indication
     Route: 065
  17. FOLIC ACID [Suspect]
     Active Substance: FOLIC ACID
     Indication: Product used for unknown indication
     Dosage: 800 MICROGRAM DAILY; 400 MCG TWICE A DAY
     Route: 065
  18. FOLIC ACID [Suspect]
     Active Substance: FOLIC ACID
     Indication: Product used for unknown indication
     Dosage: DOSAGE: THRICE DAILY (AT THE TIME OF DISCHARGE)
     Route: 048
  19. KCL [Suspect]
     Active Substance: POTASSIUM CHLORIDE
     Indication: Hypokalaemia
     Dosage: PREMIXED KCL 25 MEQ
     Route: 065
  20. POTASSIUM [Suspect]
     Active Substance: POTASSIUM
     Indication: Product used for unknown indication
     Dosage: 1800 MILLIGRAM DAILY; DOSAGE: SUSTAINED RELEASE POTASSIUM,   600 MG THRICE DAILY
     Route: 048
  21. POTASSIUM [Suspect]
     Active Substance: POTASSIUM
     Dosage: 1800 MILLIGRAM DAILY; DOSAGE: SUSTAINED RELEASE POTASSIUM, 600 MG THRICE DAILY (AT THE TIME OF DISCH
     Route: 048
  22. SODIUM BICARBONATE [Suspect]
     Active Substance: SODIUM BICARBONATE
     Indication: Diabetic ketoacidosis
     Dosage: 250 MEQ
     Route: 065
  23. SODIUM BICARBONATE [Suspect]
     Active Substance: SODIUM BICARBONATE
     Indication: Diabetic ketoacidosis
     Dosage: THRICE DAILY (AT THE TIME OF DISCHARGE)
     Route: 048
  24. SPIRONOLACTONE [Suspect]
     Active Substance: SPIRONOLACTONE
     Indication: Hypertension
     Dosage: 50 MILLIGRAM DAILY; ONCE A DAY
     Route: 048
  25. INSULIN DETEMIR [Suspect]
     Active Substance: INSULIN DETEMIR
     Indication: Type 1 diabetes mellitus
     Dosage: 18 IU (INTERNATIONAL UNIT) DAILY; DOSAGE: 18IU IN THE MORNING
     Route: 058

REACTIONS (3)
  - Abortion spontaneous [Unknown]
  - Maternal exposure during pregnancy [Unknown]
  - Intentional product misuse [Unknown]
